FAERS Safety Report 9516810 (Version 2)
Quarter: 2013Q3

REPORT INFORMATION
  Report Type: Spontaneous
  Country: US (occurrence: None)
  Receive Date: 20130710
  Receipt Date: 20130801
  Transmission Date: 20140515
  Serious: Yes (Hospitalization)
  Sender: FDA-Public Use
  Company Number: 148295

PATIENT
  Age: 70 Year
  Sex: Male
  Weight: 69 kg

DRUGS (1)
  1. LEUCOVORIN CALCIUM [Suspect]
     Indication: COLON CANCER
     Dates: start: 20130325, end: 20130527

REACTIONS (17)
  - Cholangitis [None]
  - Febrile neutropenia [None]
  - Cataract operation [None]
  - Ascites [None]
  - Haemoglobin decreased [None]
  - Blood lactate dehydrogenase increased [None]
  - Blood alkaline phosphatase increased [None]
  - Nausea [None]
  - Blood bilirubin increased [None]
  - Bilirubin conjugated increased [None]
  - Aspartate aminotransferase increased [None]
  - Alanine aminotransferase increased [None]
  - Gamma-glutamyltransferase increased [None]
  - Stoma site haemorrhage [None]
  - Decreased appetite [None]
  - Colon cancer metastatic [None]
  - Malignant neoplasm progression [None]
